FAERS Safety Report 8193251-4 (Version None)
Quarter: 2012Q1

REPORT INFORMATION
  Report Type: 
  Country: None (occurrence: None)
  Receive Date: 20120308
  Receipt Date: 20120306
  Transmission Date: 20120608
  Serious: Yes (Death, Hospitalization)
  Sender: FDA-Public Use
  Company Number: US-JNJFOC-20120108890

PATIENT
  Sex: Female

DRUGS (7)
  1. DILAUDID [Concomitant]
     Indication: PAIN
     Route: 048
  2. LOVENOX [Concomitant]
     Route: 058
  3. ZOFRAN [Concomitant]
     Indication: NAUSEA
     Route: 065
  4. FENTANYL [Concomitant]
     Indication: PAIN
     Route: 061
  5. OXYCODONE HCL [Concomitant]
     Indication: PAIN
     Route: 065
  6. DOXORUBICIN HCL [Suspect]
     Indication: OVARIAN CANCER RECURRENT
     Route: 042
     Dates: start: 20110706, end: 20110902
  7. REGLAN [Concomitant]
     Indication: NAUSEA
     Route: 065

REACTIONS (2)
  - OVARIAN CANCER [None]
  - INTESTINAL OBSTRUCTION [None]
